FAERS Safety Report 18074373 (Version 1)
Quarter: 2020Q3

REPORT INFORMATION
  Report Type: Spontaneous
  Country: GB (occurrence: GB)
  Receive Date: 20200727
  Receipt Date: 20200727
  Transmission Date: 20201103
  Serious: Yes (Other)
  Sender: FDA-Public Use
  Company Number: NVSC2020GB207866

PATIENT
  Age: 43 Year
  Sex: Male
  Weight: 96 kg

DRUGS (1)
  1. ADALIMUMAB [Suspect]
     Active Substance: ADALIMUMAB
     Indication: CROHN^S DISEASE
     Dosage: 40 G
     Route: 050
     Dates: start: 20200602

REACTIONS (8)
  - Gingival bleeding [Not Recovered/Not Resolved]
  - Diarrhoea haemorrhagic [Not Recovered/Not Resolved]
  - Mental disorder [Unknown]
  - Dizziness [Unknown]
  - Rectal haemorrhage [Recovered/Resolved with Sequelae]
  - Night sweats [Not Recovered/Not Resolved]
  - Pruritus [Unknown]
  - Asthma [Unknown]

NARRATIVE: CASE EVENT DATE: 20200603
